FAERS Safety Report 7314565-3 (Version None)
Quarter: 2011Q1

REPORT INFORMATION
  Report Type: 
  Country: None (occurrence: None)
  Receive Date: 20110225
  Receipt Date: 20101115
  Transmission Date: 20110831
  Serious: No
  Sender: FDA-Public Use
  Company Number: US-MYLANLABS-2010S1018294

PATIENT
  Age: 39 Year
  Sex: Female

DRUGS (5)
  1. TRETINOIN CREAM [Concomitant]
     Dosage: 0.025% CREAM - APPLY PEA-SIZED AMT. TO ENTIRE FACE
     Route: 061
  2. AMNESTEEM [Suspect]
     Indication: ACNE
     Route: 048
     Dates: start: 20100805, end: 20100930
  3. SPIRONOLACTONE [Concomitant]
     Route: 048
  4. CLINDAMYCIN PHOSPHATE [Concomitant]
     Dosage: 1% LOTION
     Route: 061
  5. AMNESTEEM [Suspect]
     Dates: start: 20100805, end: 20100930

REACTIONS (5)
  - MYALGIA [None]
  - DRY EYE [None]
  - DRY SKIN [None]
  - LIP DRY [None]
  - ARTHRALGIA [None]
